FAERS Safety Report 12837894 (Version 1)
Quarter: 2016Q4

REPORT INFORMATION
  Report Type: Spontaneous
  Country: US (occurrence: US)
  Receive Date: 20161012
  Receipt Date: 20161012
  Transmission Date: 20170207
  Serious: No
  Sender: FDA-Public Use
  Company Number: US-TEVA-664840USA

PATIENT
  Sex: Female

DRUGS (8)
  1. ZECUITY [Suspect]
     Active Substance: SUMATRIPTAN SUCCINATE
     Indication: HEADACHE
     Route: 062
  2. NORTRIPTYLINE [Concomitant]
     Active Substance: NORTRIPTYLINE
  3. CLONAZEPAM. [Concomitant]
     Active Substance: CLONAZEPAM
  4. LYRICA [Concomitant]
     Active Substance: PREGABALIN
  5. MAGNESIUM [Concomitant]
     Active Substance: MAGNESIUM
  6. VITAMIN B2 [Concomitant]
     Active Substance: RIBOFLAVIN
  7. VERAPAMIL [Concomitant]
     Active Substance: VERAPAMIL HYDROCHLORIDE
  8. BENADRYL [Concomitant]
     Active Substance: DIPHENHYDRAMINE HYDROCHLORIDE

REACTIONS (5)
  - Drug effect incomplete [Unknown]
  - Incorrect drug administration duration [Unknown]
  - Product physical issue [Unknown]
  - Application site erythema [Recovered/Resolved]
  - Application site discolouration [Recovered/Resolved]
